FAERS Safety Report 9742322 (Version 3)
Quarter: 2013Q4

REPORT INFORMATION
  Report Type: Report from Study
  Country: CA (occurrence: CA)
  Receive Date: 20131210
  Receipt Date: 20131219
  Transmission Date: 20140711
  Serious: Yes (Other)
  Sender: FDA-Public Use
  Company Number: CA-UCBSA-088524

PATIENT
  Age: 65 Year
  Sex: Female
  Weight: 36.3 kg

DRUGS (11)
  1. CIMZIA [Suspect]
     Indication: RHEUMATOID ARTHRITIS
     Dosage: 0-2-4 WEEKS
     Route: 058
     Dates: start: 20130530, end: 20130628
  2. CIMZIA [Suspect]
     Indication: RHEUMATOID ARTHRITIS
     Route: 058
     Dates: start: 20130712, end: 2013
  3. PREDNISONE [Concomitant]
     Indication: RHEUMATOID ARTHRITIS
     Route: 048
     Dates: start: 20130426
  4. MTX [Concomitant]
     Indication: RHEUMATOID ARTHRITIS
     Route: 048
     Dates: start: 200610
  5. PANTOPRAZOLE [Concomitant]
  6. RAMIPRIL [Concomitant]
     Dosage: 2.5/12.5 ONCE DAILY
  7. FOLIC ACID [Concomitant]
     Dosage: 5 MG ONCE IN 2 DAYS
  8. TIMAZETAM [Concomitant]
     Dosage: 15 MG QHS
  9. NOVO-RISEDRONATE [Concomitant]
     Dosage: 35 MG ONE WEEKLY
  10. VITAMIN E [Concomitant]
     Indication: ECZEMA
     Dosage: UNKNOWN DOSE
     Route: 061
  11. VITAMIN E [Concomitant]
     Indication: ECZEMA
     Dosage: UNKNOWN DOSE
     Route: 048

REACTIONS (5)
  - Herpes zoster [Not Recovered/Not Resolved]
  - Injection site reaction [Recovering/Resolving]
  - Headache [Recovered/Resolved]
  - Anxiety [Unknown]
  - Nervousness [Unknown]
